FAERS Safety Report 10220957 (Version 2)
Quarter: 2014Q2

REPORT INFORMATION
  Report Type: Spontaneous
  Country: SI (occurrence: SI)
  Receive Date: 20140606
  Receipt Date: 20140619
  Transmission Date: 20141212
  Serious: Yes (Life-Threatening)
  Sender: FDA-Public Use
  Company Number: SI-JNJFOC-20140600064

PATIENT
  Age: 81 Year
  Sex: Female

DRUGS (9)
  1. XARELTO [Suspect]
     Indication: EMBOLISM VENOUS
     Route: 048
     Dates: start: 20140113, end: 20140205
  2. XARELTO [Suspect]
     Indication: DEEP VEIN THROMBOSIS
     Route: 048
     Dates: start: 20140113, end: 20140205
  3. HALDOL [Concomitant]
     Route: 065
  4. QUETIAPINE [Concomitant]
     Route: 065
  5. VENLAFAXINE [Concomitant]
     Route: 065
  6. GALANTAMINE [Concomitant]
     Route: 065
  7. LAMICTAL [Concomitant]
     Route: 065
  8. LEKADOL [Concomitant]
     Route: 065
  9. FOLACIN [Concomitant]
     Route: 065

REACTIONS (2)
  - Brain oedema [Unknown]
  - Cerebral haematoma [Recovered/Resolved with Sequelae]
